FAERS Safety Report 24463341 (Version 1)
Quarter: 2024Q4

REPORT INFORMATION
  Report Type: Report from Study
  Country: US (occurrence: US)
  Receive Date: 20241018
  Receipt Date: 20241018
  Transmission Date: 20250114
  Serious: No
  Sender: ROCHE
  Company Number: US-ROCHE-3250077

PATIENT
  Age: 84 Year
  Sex: Female
  Weight: 53.3 kg

DRUGS (2)
  1. XOLAIR [Suspect]
     Active Substance: OMALIZUMAB
     Indication: Asthma
     Dosage: STRENGTH -150 MG/ML?LAST INJECTION DATE - 12/APR/2022. 09/JAN/2024, SHE RECEIVED LAST INJECTION
     Route: 058
  2. XOLAIR [Suspect]
     Active Substance: OMALIZUMAB
     Indication: Asthma

REACTIONS (2)
  - Off label use [Unknown]
  - No adverse event [Unknown]
